FAERS Safety Report 6177224-9 (Version None)
Quarter: 2009Q2

REPORT INFORMATION
  Report Type: 
  Country: None (occurrence: None)
  Receive Date: 20090430
  Receipt Date: 20090430
  Transmission Date: 20091009
  Serious: Yes (Hospitalization)
  Sender: FDA-Public Use
  Company Number: None

PATIENT
  Sex: Female
  Weight: 80 kg

DRUGS (4)
  1. CISPLATIN [Suspect]
     Dosage: 91 MG
  2. DOXORUBICIN HYDROCHLORIDE [Suspect]
     Dosage: 82 MG
  3. TAXOL [Suspect]
     Dosage: 290 MG
  4. NEULASTA [Suspect]
     Dosage: 6 MG

REACTIONS (1)
  - DEHYDRATION [None]
